FAERS Safety Report 18209426 (Version 2)
Quarter: 2020Q3

REPORT INFORMATION
  Report Type: Spontaneous
  Country: US (occurrence: US)
  Receive Date: 20200828
  Receipt Date: 20200930
  Transmission Date: 20201103
  Serious: No
  Sender: FDA-Public Use
  Company Number: US-009507513-2008USA013509

PATIENT
  Age: 60 Year
  Sex: Female
  Weight: 68.03 kg

DRUGS (5)
  1. ATARAX [Concomitant]
     Active Substance: HYDROXYZINE HYDROCHLORIDE
     Dosage: 25 MILLIGRAM, TID
     Route: 048
     Dates: start: 20200120
  2. XANAX [Concomitant]
     Active Substance: ALPRAZOLAM
     Dosage: 250 MICROGRAM, BID
     Route: 048
     Dates: start: 20200623
  3. BELSOMRA [Suspect]
     Active Substance: SUVOREXANT
     Indication: INSOMNIA
     Dosage: 15MG/NIGHTLY
     Route: 048
     Dates: start: 20200817, end: 20200818
  4. URSODIOL. [Concomitant]
     Active Substance: URSODIOL
     Dosage: 250 MILLIGRAM, TID
     Route: 048
     Dates: start: 20200504
  5. ESTRADIOL. [Concomitant]
     Active Substance: ESTRADIOL
     Dosage: 2 MILLIGRAM, QD
     Route: 048
     Dates: start: 20191203

REACTIONS (7)
  - Nightmare [Recovering/Resolving]
  - Night sweats [Recovering/Resolving]
  - Illness [Unknown]
  - Drug ineffective [Unknown]
  - Pruritus [Unknown]
  - Product administration error [Unknown]
  - Depression [Recovering/Resolving]

NARRATIVE: CASE EVENT DATE: 20200817
